FAERS Safety Report 8311008 (Version 3)
Quarter: 2013Q1

REPORT INFORMATION
  Report Type: Report from Study
  Country: US (occurrence: US)
  Receive Date: 20111227
  Receipt Date: 20130213
  Transmission Date: 20140127
  Serious: Yes (Hospitalization, Other)
  Sender: FDA-Public Use
  Company Number: US-BRISTOL-MYERS SQUIBB COMPANY-16295594

PATIENT
  Age: 64 Year
  Sex: Male
  Weight: 92.2 kg

DRUGS (2)
  1. IPILIMUMAB [Suspect]
     Indication: MALIGNANT MELANOMA
     Dosage: LAST DOSE:15NOV11?920 MG OVER 90MIN, Q12 WEEKS ON WEEKS 24,36,48,60
     Route: 042
     Dates: start: 20110912
  2. PREDNISONE [Suspect]

REACTIONS (3)
  - Nausea [Recovered/Resolved]
  - Mucosal infection [Recovered/Resolved]
  - Gastritis [Unknown]
